FAERS Safety Report 6894688-3 (Version None)
Quarter: 2010Q3

REPORT INFORMATION
  Report Type: 
  Country: None (occurrence: None)
  Receive Date: 20100730
  Receipt Date: 20100730
  Transmission Date: 20110219
  Serious: Yes (Other)
  Sender: FDA-Public Use
  Company Number: None

PATIENT
  Age: 25 Year
  Sex: Female
  Weight: 82.5547 kg

DRUGS (1)
  1. APLISOL [Suspect]
     Indication: TUBERCULIN TEST
     Dosage: 0.1CC X1 LT ARM  ID (INTRADERMAL)
     Route: 023
     Dates: start: 20100716

REACTIONS (4)
  - ERYTHEMA [None]
  - FEELING HOT [None]
  - PRURITUS [None]
  - SWELLING [None]
